FAERS Safety Report 19929472 (Version 2)
Quarter: 2021Q4

REPORT INFORMATION
  Report Type: Spontaneous
  Country: US (occurrence: US)
  Receive Date: 20211007
  Receipt Date: 20211015
  Transmission Date: 20220303
  Serious: Yes (Other)
  Sender: FDA-Public Use
  Company Number: US-PFIZER INC-202101300732

PATIENT
  Age: 89 Year
  Sex: Female
  Weight: 49.9 kg

DRUGS (1)
  1. COLESTIPOL HYDROCHLORIDE [Suspect]
     Active Substance: COLESTIPOL HYDROCHLORIDE
     Dosage: 1 G (1 GRAM TWICE A DAY BY MOUTH)

REACTIONS (2)
  - Foreign body in throat [Unknown]
  - Dysphagia [Unknown]
